FAERS Safety Report 5141998-6 (Version None)
Quarter: 2006Q4

REPORT INFORMATION
  Report Type: 
  Country: None (occurrence: None)
  Receive Date: 20061102
  Receipt Date: 20061030
  Transmission Date: 20070319
  Serious: Yes (Life-Threatening)
  Sender: FDA-Public Use
  Company Number: 2006CG01768

PATIENT
  Age: 19554 Day
  Sex: Female
  Weight: 65 kg

DRUGS (5)
  1. ARIMIDEX [Suspect]
     Indication: BREAST CANCER
     Route: 048
     Dates: start: 20000701, end: 20010101
  2. ENDOXAN [Suspect]
     Indication: BREAST CANCER
     Dosage: CYCLES
     Route: 042
     Dates: start: 20000701
  3. FARMORUBICINE [Suspect]
     Indication: BREAST CANCER
     Dosage: CYCLES
     Route: 042
     Dates: start: 20000701
  4. FLUOROURACIL [Suspect]
     Indication: BREAST CANCER
     Dosage: CYCLES
     Route: 042
     Dates: start: 20000701
  5. CARDIOXANE [Suspect]
     Indication: BREAST CANCER
     Dosage: CYCLES
     Route: 042
     Dates: start: 20000701, end: 20010101

REACTIONS (2)
  - ACUTE MYELOID LEUKAEMIA [None]
  - ACUTE PROMYELOCYTIC LEUKAEMIA [None]
